FAERS Safety Report 20356494 (Version 4)
Quarter: 2023Q1

REPORT INFORMATION
  Report Type: Spontaneous
  Country: US (occurrence: US)
  Receive Date: 20220120
  Receipt Date: 20230118
  Transmission Date: 20230418
  Serious: No
  Sender: FDA-Public Use
  Company Number: US-PFIZER INC-202101209794

PATIENT
  Age: 49 Year
  Sex: Female
  Weight: 58.957 kg

DRUGS (2)
  1. IBRANCE [Suspect]
     Active Substance: PALBOCICLIB
     Indication: Breast cancer female
     Dosage: 1 TABLET DAILY 21 DAYS ON, 7 DAYS OFF
     Route: 048
     Dates: start: 20210825
  2. FASLODEX [Concomitant]
     Active Substance: FULVESTRANT
     Dosage: UNK

REACTIONS (9)
  - Gingival disorder [Recovering/Resolving]
  - Insomnia [Unknown]
  - Hypersomnia [Unknown]
  - Taste disorder [Unknown]
  - Full blood count abnormal [Unknown]
  - Neoplasm recurrence [Unknown]
  - Alopecia [Unknown]
  - Bone marrow myelogram abnormal [Unknown]
  - White blood cell count decreased [Unknown]
